FAERS Safety Report 6389005-1 (Version None)
Quarter: 2009Q4

REPORT INFORMATION
  Report Type: 
  Country: None (occurrence: None)
  Receive Date: 20091001
  Receipt Date: 20090917
  Transmission Date: 20100525
  Serious: Yes (Other)
  Sender: FDA-Public Use
  Company Number: 2009SP026592

PATIENT
  Age: 20 Year
  Sex: Male

DRUGS (1)
  1. CORICIDIN HBP COUGH + COLD (CHLORPHENIRAMINE MALEATE/DEXTROMETHORPHAN [Suspect]
     Dosage: 16 DF;PO
     Route: 048

REACTIONS (12)
  - AGGRESSION [None]
  - ATAXIA [None]
  - BALANCE DISORDER [None]
  - CARDIO-RESPIRATORY ARREST [None]
  - DECREASED ACTIVITY [None]
  - DYSARTHRIA [None]
  - GAIT DISTURBANCE [None]
  - HYPOKINESIA [None]
  - MOOD SWINGS [None]
  - MYDRIASIS [None]
  - NYSTAGMUS [None]
  - OVERDOSE [None]
